FAERS Safety Report 9672428 (Version 1)
Quarter: 2013Q4

REPORT INFORMATION
  Report Type: Spontaneous
  Country: US (occurrence: US)
  Receive Date: 20131106
  Receipt Date: 20131106
  Transmission Date: 20140711
  Serious: Yes (Other)
  Sender: FDA-Public Use
  Company Number: US-PFIZER INC-2013314346

PATIENT
  Age: 85 Year
  Sex: Female
  Weight: 74.83 kg

DRUGS (2)
  1. PREMARIN [Suspect]
     Indication: VULVOVAGINAL DRYNESS
     Dosage: UNK
     Route: 067
     Dates: start: 2013, end: 2013
  2. PREMARIN [Suspect]
     Dosage: UNK
     Route: 067
     Dates: start: 20130908, end: 201309

REACTIONS (3)
  - Convulsion [Unknown]
  - Menopausal symptoms [Unknown]
  - Hot flush [Unknown]
